FAERS Safety Report 7377950-X (Version None)
Quarter: 2011Q1

REPORT INFORMATION
  Report Type: 
  Country: None (occurrence: None)
  Receive Date: 20110328
  Receipt Date: 20110322
  Transmission Date: 20110831
  Serious: Yes (Hospitalization, Other)
  Sender: FDA-Public Use
  Company Number: CA-PFIZER INC-2011063473

PATIENT
  Age: 48 Year
  Sex: Male
  Weight: 84 kg

DRUGS (6)
  1. ADVIL LIQUI-GELS [Suspect]
     Dosage: 600 MG, 1X/DAY
  2. CELEBREX [Suspect]
     Dosage: 200 MG, 2X/DAY
  3. APO-NAPROXEN [Suspect]
     Dosage: 750 MG, 1X/DAY
     Route: 048
  4. MULTI-VITAMINS [Concomitant]
     Dosage: UNK
  5. ZOPICLONE [Concomitant]
     Dosage: UNK
  6. CIPROFLOXACIN [Suspect]
     Dosage: 500 MG TOTAL
     Route: 048

REACTIONS (3)
  - RENAL FAILURE ACUTE [None]
  - BLOOD CREATININE INCREASED [None]
  - HYPERTENSION [None]
